FAERS Safety Report 25168412 (Version 1)
Quarter: 2025Q2

REPORT INFORMATION
  Report Type: Spontaneous
  Country: US (occurrence: US)
  Receive Date: 20250407
  Receipt Date: 20250407
  Transmission Date: 20250716
  Serious: No
  Sender: ELI LILLY AND CO
  Company Number: US-ELI_LILLY_AND_COMPANY-US202504002241

PATIENT
  Age: 66 Year
  Sex: Male

DRUGS (4)
  1. ERBITUX [Suspect]
     Active Substance: CETUXIMAB
     Indication: Head and neck cancer metastatic
     Route: 065
     Dates: start: 20250211
  2. CARBOPLATIN [Concomitant]
     Active Substance: CARBOPLATIN
     Indication: Head and neck cancer metastatic
  3. TAXOL [Concomitant]
     Active Substance: PACLITAXEL
     Indication: Head and neck cancer metastatic
  4. TAXOTERE [Concomitant]
     Active Substance: DOCETAXEL
     Indication: Head and neck cancer metastatic

REACTIONS (1)
  - Rash [Unknown]
